FAERS Safety Report 6161707-1 (Version None)
Quarter: 2009Q2

REPORT INFORMATION
  Report Type: 
  Country: None (occurrence: None)
  Receive Date: 20090421
  Receipt Date: 20090410
  Transmission Date: 20091009
  Serious: Yes (Life-Threatening, Hospitalization)
  Sender: FDA-Public Use
  Company Number: BE-BAXTER-2009BH005962

PATIENT
  Age: 66 Year
  Sex: Female
  Weight: 74 kg

DRUGS (13)
  1. CYCLOPHOSPHAMIDE [Suspect]
     Indication: BREAST CANCER
     Route: 065
     Dates: start: 20081209
  2. CYCLOPHOSPHAMIDE [Suspect]
     Route: 065
     Dates: start: 20081230
  3. CYCLOPHOSPHAMIDE [Suspect]
     Route: 065
     Dates: start: 20090120
  4. CYCLOPHOSPHAMIDE [Suspect]
     Route: 065
     Dates: start: 20090210
  5. LOTROZOLE [Suspect]
     Indication: DRUG USE FOR UNKNOWN INDICATION
     Route: 065
  6. EPIRUBICIN [Suspect]
     Indication: BREAST CANCER
     Route: 065
     Dates: start: 20081209
  7. EPIRUBICIN [Suspect]
     Route: 065
     Dates: start: 20081230
  8. EPIRUBICIN [Suspect]
     Route: 065
     Dates: start: 20090120
  9. EPIRUBICIN [Suspect]
     Route: 065
     Dates: start: 20090210
  10. FLUOROURACIL [Suspect]
     Indication: BREAST CANCER
     Route: 065
     Dates: start: 20081209
  11. FLUOROURACIL [Suspect]
     Route: 065
     Dates: start: 20081230
  12. FLUOROURACIL [Suspect]
     Route: 065
     Dates: start: 20090120
  13. FLUOROURACIL [Suspect]
     Route: 065
     Dates: start: 20090210

REACTIONS (9)
  - ANAEMIA [None]
  - ANAL HAEMORRHAGE [None]
  - EPISTAXIS [None]
  - GENERAL PHYSICAL HEALTH DETERIORATION [None]
  - MALAISE [None]
  - PANCYTOPENIA [None]
  - PYREXIA [None]
  - STREPTOCOCCAL INFECTION [None]
  - THROMBOCYTOPENIA [None]
